FAERS Safety Report 26088749 (Version 1)
Quarter: 2025Q4

REPORT INFORMATION
  Report Type: Spontaneous
  Country: IN (occurrence: IN)
  Receive Date: 20251125
  Receipt Date: 20251125
  Transmission Date: 20260118
  Serious: Yes (Hospitalization)
  Sender: ABBVIE
  Company Number: IN-ABBOTT-2025A-1404269

PATIENT

DRUGS (1)
  1. THYROID [Suspect]
     Active Substance: LEVOTHYROXINE\LIOTHYRONINE
     Indication: Product used for unknown indication
     Dosage: LOT EXPIRATION DATE: UNKNOWN
     Route: 048

REACTIONS (2)
  - Accidental exposure to product by child [Unknown]
  - Product packaging issue [Unknown]
